FAERS Safety Report 8157538-3 (Version None)
Quarter: 2012Q1

REPORT INFORMATION
  Report Type: 
  Country: None (occurrence: None)
  Receive Date: 20120222
  Receipt Date: 20110811
  Transmission Date: 20120608
  Serious: No
  Sender: FDA-Public Use
  Company Number: US-ASTRAZENECA-2011SE48766

PATIENT

DRUGS (3)
  1. SEROQUEL [Suspect]
     Route: 048
  2. SYMBICORT [Suspect]
     Dosage: 160/4.5 MCG 1 PUFF TWO TIMES A DAY
     Route: 055
  3. ATENOLOL [Suspect]
     Route: 048

REACTIONS (2)
  - CHEST DISCOMFORT [None]
  - PAIN [None]
